FAERS Safety Report 7970758-3 (Version None)
Quarter: 2011Q4

REPORT INFORMATION
  Report Type: 
  Country: None (occurrence: None)
  Receive Date: 20111212
  Receipt Date: 20111201
  Transmission Date: 20120403
  Serious: Yes (Other)
  Sender: FDA-Public Use
  Company Number: PHHY2011CA105676

PATIENT

DRUGS (3)
  1. CALCIUM CHANNEL BLOCKERS [Concomitant]
  2. ALISKIREN [Suspect]
  3. DIURETICS [Concomitant]

REACTIONS (3)
  - DIZZINESS [None]
  - BLOOD PRESSURE INCREASED [None]
  - HEART RATE DECREASED [None]
